FAERS Safety Report 9003680 (Version 1)
Quarter: 2013Q1

REPORT INFORMATION
  Report Type: Spontaneous
  Country: US (occurrence: US)
  Receive Date: 20130108
  Receipt Date: 20130108
  Transmission Date: 20140127
  Serious: No
  Sender: FDA-Public Use
  Company Number: US-GLAXOSMITHKLINE-A0959612A

PATIENT
  Sex: Female

DRUGS (8)
  1. LOVAZA [Suspect]
     Indication: BLOOD TRIGLYCERIDES INCREASED
     Dosage: 4CAP PER DAY
     Route: 048
     Dates: start: 2009
  2. DIOVAN [Concomitant]
  3. TORSEMIDE [Concomitant]
  4. PAXIL [Concomitant]
  5. METFORMIN [Concomitant]
  6. INSULIN [Concomitant]
  7. BABY ASA [Concomitant]
  8. SYNTHROID [Concomitant]

REACTIONS (2)
  - Eructation [Recovering/Resolving]
  - Frequent bowel movements [Unknown]
